FAERS Safety Report 19926331 (Version 1)
Quarter: 2021Q4

REPORT INFORMATION
  Report Type: Spontaneous
  Country: US (occurrence: US)
  Receive Date: 20211007
  Receipt Date: 20211007
  Transmission Date: 20220303
  Serious: No
  Sender: FDA-Public Use
  Company Number: US-MTPC-MTDA2021-0024188

PATIENT
  Sex: Female

DRUGS (1)
  1. RADICAVA [Suspect]
     Active Substance: EDARAVONE
     Indication: Amyotrophic lateral sclerosis
     Dosage: 30 MILLIGRAM / 100ML 1 INFUSION DAILY FOR 10 DAYS, 14 DAYAYS OFF , QD
     Route: 042

REACTIONS (1)
  - General physical health deterioration [Unknown]
